FAERS Safety Report 25172540 (Version 1)
Quarter: 2025Q2

REPORT INFORMATION
  Report Type: Spontaneous
  Country: US (occurrence: US)
  Receive Date: 20250408
  Receipt Date: 20250408
  Transmission Date: 20250716
  Serious: Yes (Hospitalization, Other)
  Sender: SANOFI AVENTIS
  Company Number: US-SANOFI-02475259

PATIENT
  Age: 78 Year
  Sex: Male

DRUGS (1)
  1. DUPIXENT [Suspect]
     Active Substance: DUPILUMAB
     Indication: Chronic obstructive pulmonary disease
     Dosage: 300 MG, QOW
     Dates: start: 20250131, end: 20250404

REACTIONS (9)
  - Pneumonia [Unknown]
  - Influenza [Unknown]
  - Chronic obstructive pulmonary disease [Unknown]
  - Abdominal pain upper [Unknown]
  - Abdominal discomfort [Unknown]
  - Nausea [Unknown]
  - Diarrhoea [Unknown]
  - Impaired quality of life [Unknown]
  - Back pain [Unknown]

NARRATIVE: CASE EVENT DATE: 20250101
